FAERS Safety Report 8771204 (Version 2)
Quarter: 2012Q4

REPORT INFORMATION
  Report Type: 
  Country: US (occurrence: US)
  Receive Date: 20120906
  Receipt Date: 20121003
  Transmission Date: 20130627
  Serious: No
  Sender: FDA-Public Use
  Company Number: US-VERTEX PHARMACEUTICAL INC.-2012-020217

PATIENT
  Age: 58 None
  Sex: Female
  Weight: 91 kg

DRUGS (8)
  1. INCIVEK [Suspect]
     Indication: HEPATITIS C
     Dosage: 750 mg, tid
     Route: 048
     Dates: start: 20120820
  2. PEGASYS [Suspect]
     Indication: HEPATITIS C
     Dosage: 180 ?g, UNK
     Route: 058
     Dates: start: 20120819
  3. RIBAVIRIN [Suspect]
     Indication: HEPATITIS C
     Dosage: 600 mg, bid
     Route: 048
     Dates: start: 20120820
  4. TEMAZEPAM [Concomitant]
     Route: 048
  5. SYNTHROID [Concomitant]
     Route: 048
  6. LISINOPRIL [Concomitant]
     Route: 048
  7. PROZAC [Concomitant]
     Route: 048
  8. GABAPENTIN [Concomitant]
     Route: 048

REACTIONS (5)
  - Inappropriate schedule of drug administration [Recovered/Resolved]
  - Headache [Not Recovered/Not Resolved]
  - Alopecia [Not Recovered/Not Resolved]
  - Abdominal distension [Not Recovered/Not Resolved]
  - Haemorrhoids [Not Recovered/Not Resolved]
